FAERS Safety Report 5424510-3 (Version None)
Quarter: 2007Q3

REPORT INFORMATION
  Report Type: 
  Country: None (occurrence: None)
  Receive Date: 20070727
  Receipt Date: 20070410
  Transmission Date: 20080115
  Serious: No
  Sender: FDA-Public Use
  Company Number: 262619

PATIENT
  Age: 51 Year
  Sex: Male

DRUGS (1)
  1. LEVEMIR [Suspect]
     Indication: TYPE 2 DIABETES MELLITUS
     Dosage: 4 U, SUBCUTANEOUS
     Route: 058

REACTIONS (4)
  - INJECTION SITE IRRITATION [None]
  - INJECTION SITE PRURITUS [None]
  - INJECTION SITE RASH [None]
  - SKIN EXFOLIATION [None]
